FAERS Safety Report 5915995-4 (Version None)
Quarter: 2008Q4

REPORT INFORMATION
  Report Type: 
  Country: None (occurrence: None)
  Receive Date: 20081013
  Receipt Date: 20081003
  Transmission Date: 20090506
  Serious: Yes (Death, Hospitalization)
  Sender: FDA-Public Use
  Company Number: FR-JNJFOC-20081002005

PATIENT

DRUGS (3)
  1. FENTANYL [Suspect]
     Indication: NEUROPATHY PERIPHERAL
     Route: 062
  2. FENTANYL [Suspect]
     Indication: INFLAMMATORY PAIN
     Route: 062
  3. FENTANYL [Suspect]
     Indication: BACK PAIN
     Route: 062

REACTIONS (2)
  - OFF LABEL USE [None]
  - OVERDOSE [None]
